FAERS Safety Report 9999677 (Version 1)
Quarter: 2014Q1

REPORT INFORMATION
  Report Type: Spontaneous
  Country: US (occurrence: US)
  Receive Date: 20140312
  Receipt Date: 20140312
  Transmission Date: 20141002
  Serious: Yes (Other)
  Sender: FDA-Public Use
  Company Number: US-BAYER-2014-034329

PATIENT
  Age: 79 Year
  Sex: Male

DRUGS (1)
  1. BAYER ASPIRIN REGIMEN ADULT LOW STRENGTH [Suspect]

REACTIONS (1)
  - Gastric haemorrhage [None]
